FAERS Safety Report 6795620-3 (Version None)
Quarter: 2010Q2

REPORT INFORMATION
  Report Type: 
  Country: None (occurrence: None)
  Receive Date: 20100625
  Receipt Date: 20100618
  Transmission Date: 20101027
  Serious: Yes (Hospitalization)
  Sender: FDA-Public Use
  Company Number: TR-JNJCH-2010014875

PATIENT

DRUGS (1)
  1. ASPIRIN [Suspect]
     Indication: OTITIS MEDIA ACUTE
     Dosage: TEXT:UNSPECIFIED
     Route: 048

REACTIONS (1)
  - UPPER GASTROINTESTINAL HAEMORRHAGE [None]
